FAERS Safety Report 21206365 (Version 3)
Quarter: 2023Q1

REPORT INFORMATION
  Report Type: Spontaneous
  Country: DE (occurrence: DE)
  Receive Date: 20220812
  Receipt Date: 20230317
  Transmission Date: 20230417
  Serious: Yes (Other)
  Sender: FDA-Public Use
  Company Number: None

PATIENT
  Age: 29 Year
  Sex: Female

DRUGS (3)
  1. SERTRALINE [Suspect]
     Active Substance: SERTRALINE HYDROCHLORIDE
     Indication: Panic attack
     Dosage: UNKNOWN
     Route: 048
     Dates: start: 20161211, end: 20191215
  2. VENLAFAXINE [Suspect]
     Active Substance: VENLAFAXINE HYDROCHLORIDE
     Indication: Panic attack
     Dosage: UNKNOWN
     Route: 048
     Dates: start: 20161211, end: 20191215
  3. SULPIRIDE [Suspect]
     Active Substance: SULPIRIDE
     Indication: Depression
     Dosage: UNKNOWN
     Route: 048
     Dates: start: 20161211, end: 20191215

REACTIONS (14)
  - Disturbance in attention [Recovered/Resolved with Sequelae]
  - Mental impairment [Recovered/Resolved with Sequelae]
  - Derealisation [Recovered/Resolved with Sequelae]
  - Nightmare [Recovered/Resolved with Sequelae]
  - Tearfulness [Recovered/Resolved with Sequelae]
  - Depressive symptom [Recovered/Resolved with Sequelae]
  - Anhedonia [Recovered/Resolved with Sequelae]
  - Female sexual dysfunction [Recovered/Resolved with Sequelae]
  - Emotional poverty [Recovered/Resolved with Sequelae]
  - Sexual dysfunction [Recovered/Resolved with Sequelae]
  - Night sweats [Recovered/Resolved with Sequelae]
  - Genital anaesthesia [Recovered/Resolved with Sequelae]
  - Libido decreased [Recovered/Resolved with Sequelae]
  - Visual impairment [Recovered/Resolved with Sequelae]

NARRATIVE: CASE EVENT DATE: 20191215
